FAERS Safety Report 5323220-0 (Version None)
Quarter: 2007Q2

REPORT INFORMATION
  Report Type: 
  Country: None (occurrence: None)
  Receive Date: 20070220
  Receipt Date: 20070112
  Transmission Date: 20071010
  Serious: No
  Sender: FDA-Public Use
  Company Number: WAES 0701USA01937

PATIENT
  Age: 75 Year
  Sex: Female

DRUGS (4)
  1. JANUVIA [Suspect]
     Indication: DIABETES MELLITUS NON-INSULIN-DEPENDENT
     Dosage: 100 MG/DAILY/PO
     Route: 048
     Dates: start: 20070110, end: 20070112
  2. ACEON [Concomitant]
  3. AMARYL [Concomitant]
  4. GLUCOPHAGE [Concomitant]

REACTIONS (2)
  - HEADACHE [None]
  - OESOPHAGEAL DISCOMFORT [None]
